FAERS Safety Report 16570587 (Version 2)
Quarter: 2019Q3

REPORT INFORMATION
  Report Type: Spontaneous
  Country: JP (occurrence: JP)
  Receive Date: 20190715
  Receipt Date: 20190723
  Transmission Date: 20191004
  Serious: Yes (Disabling)
  Sender: FDA-Public Use
  Company Number: JP-CELGENEUS-JPN-20181206815

PATIENT
  Age: 59 Year
  Sex: Female
  Weight: 60.2 kg

DRUGS (22)
  1. ABRAXANE [Suspect]
     Active Substance: PACLITAXEL
     Dosage: 80% DOSE
     Route: 041
     Dates: start: 20180306, end: 20180306
  2. ABRAXANE [Suspect]
     Active Substance: PACLITAXEL
     Dosage: 70% DOSE
     Route: 041
     Dates: start: 20180515, end: 20180522
  3. ABRAXANE [Suspect]
     Active Substance: PACLITAXEL
     Dosage: 207.5 MILLIGRAM/SQ. METER
     Route: 041
     Dates: start: 20180213, end: 20180227
  4. ABRAXANE [Suspect]
     Active Substance: PACLITAXEL
     Dosage: 80% DOSE
     Route: 041
     Dates: start: 20180320, end: 20180320
  5. GEMCITABINE HYDROCHLORIDE. [Concomitant]
     Active Substance: GEMCITABINE HYDROCHLORIDE
     Dosage: 80% DOSE
     Route: 041
     Dates: start: 20180320, end: 20180320
  6. GEMCITABINE HYDROCHLORIDE. [Concomitant]
     Active Substance: GEMCITABINE HYDROCHLORIDE
     Dosage: 70% DOSE
     Route: 041
     Dates: start: 20180515, end: 20180522
  7. GEMCITABINE HYDROCHLORIDE. [Concomitant]
     Active Substance: GEMCITABINE HYDROCHLORIDE
     Dosage: 60% DOSE
     Route: 041
     Dates: start: 20180710, end: 20180710
  8. URSODEOXYCHOLIC ACID [Concomitant]
     Active Substance: URSODIOL
     Indication: PROPHYLAXIS
     Dosage: 300 MILLIGRAM
     Route: 048
     Dates: start: 20160206
  9. GEMCITABINE HYDROCHLORIDE. [Concomitant]
     Active Substance: GEMCITABINE HYDROCHLORIDE
     Dosage: 80% DOSE
     Route: 041
     Dates: start: 20180306, end: 20180306
  10. HIRUDOID [Concomitant]
     Active Substance: GLYCOSAMINOGLYCANS
     Indication: PRODUCT USED FOR UNKNOWN INDICATION
     Route: 065
     Dates: start: 20180306, end: 20180515
  11. GEMCITABINE HYDROCHLORIDE. [Concomitant]
     Active Substance: GEMCITABINE HYDROCHLORIDE
     Dosage: 60% DOSE
     Route: 041
     Dates: start: 20180605, end: 20180626
  12. LOXOPROFEN SODIUM HYDRATE [Concomitant]
     Active Substance: LOXOPROFEN SODIUM DIHYDRATE
     Indication: WOUND COMPLICATION
     Dosage: 180 MILLIGRAM
     Route: 048
     Dates: start: 20160206
  13. NERISONA [Concomitant]
     Active Substance: DIFLUCORTOLONE VALERATE
     Indication: PRODUCT USED FOR UNKNOWN INDICATION
     Route: 065
     Dates: start: 20180306, end: 20180515
  14. BIOTIN [Concomitant]
     Active Substance: BIOTIN
     Indication: PRODUCT USED FOR UNKNOWN INDICATION
     Dosage: 3 MILLIGRAM
     Route: 065
     Dates: start: 20180403, end: 20180515
  15. MOSAPRIDE CITRATE HYDRATE [Concomitant]
     Active Substance: MOSAPRIDE CITRATE DIHYDRATE
     Indication: IMPAIRED GASTRIC EMPTYING
     Dosage: 15 MILLIGRAM
     Route: 048
     Dates: start: 20160206
  16. ABRAXANE [Suspect]
     Active Substance: PACLITAXEL
     Indication: PANCREATIC CARCINOMA METASTATIC
     Dosage: 207.5 MILLIGRAM/SQ. METER
     Route: 041
     Dates: start: 20171218, end: 20180130
  17. ABRAXANE [Suspect]
     Active Substance: PACLITAXEL
     Dosage: 60% DOSE
     Route: 041
     Dates: start: 20180710, end: 20180710
  18. GEMCITABINE HYDROCHLORIDE. [Concomitant]
     Active Substance: GEMCITABINE HYDROCHLORIDE
     Indication: PANCREATIC CARCINOMA METASTATIC
     Dosage: 1660 MILLIGRAM/SQ. METER
     Route: 041
     Dates: start: 20171218, end: 20180130
  19. GEMCITABINE HYDROCHLORIDE. [Concomitant]
     Active Substance: GEMCITABINE HYDROCHLORIDE
     Dosage: 1660 MILLIGRAM/SQ. METER
     Route: 041
     Dates: start: 20180213, end: 20180227
  20. FAMOTIDINE. [Concomitant]
     Active Substance: FAMOTIDINE
     Indication: PROPHYLAXIS
     Dosage: 40 MILLIGRAM
     Route: 048
     Dates: start: 20160206
  21. ABRAXANE [Suspect]
     Active Substance: PACLITAXEL
     Dosage: 60% DOSE
     Route: 041
     Dates: start: 20180605, end: 20180626
  22. VIBRAMYCIN [Concomitant]
     Active Substance: DOXYCYCLINE
     Indication: PRODUCT USED FOR UNKNOWN INDICATION
     Dosage: 200 MILLIGRAM
     Route: 065
     Dates: start: 20180403, end: 20180515

REACTIONS (3)
  - Nail bed bleeding [Recovering/Resolving]
  - Platelet count decreased [Recovering/Resolving]
  - Neutrophil count decreased [Recovering/Resolving]

NARRATIVE: CASE EVENT DATE: 20180206
